FAERS Safety Report 18931761 (Version 2)
Quarter: 2023Q1

REPORT INFORMATION
  Report Type: Spontaneous
  Country: US (occurrence: US)
  Receive Date: 20210223
  Receipt Date: 20230227
  Transmission Date: 20230418
  Serious: No
  Sender: FDA-Public Use
  Company Number: US-IGSA-BIG0010800

PATIENT
  Age: 36 Year
  Sex: Female
  Weight: 63 kg

DRUGS (9)
  1. PROLASTIN-C LIQUID [Suspect]
     Active Substance: .ALPHA.1-PROTEINASE INHIBITOR HUMAN
     Indication: Alpha-1 antitrypsin deficiency
     Dosage: 3780 MILLIGRAM, Q.WK.
     Route: 042
     Dates: start: 20221021
  2. PROLASTIN-C LIQUID [Suspect]
     Active Substance: .ALPHA.1-PROTEINASE INHIBITOR HUMAN
     Dosage: 3780 MILLIGRAM, Q.WK.
     Route: 042
     Dates: start: 20200715
  3. PROLASTIN-C LIQUID [Suspect]
     Active Substance: .ALPHA.1-PROTEINASE INHIBITOR HUMAN
     Dosage: 3780 MILLIGRAM, Q.WK.
     Route: 042
     Dates: start: 20200717
  4. PROLASTIN-C LIQUID [Suspect]
     Active Substance: .ALPHA.1-PROTEINASE INHIBITOR HUMAN
     Dosage: 3780 MILLIGRAM, Q.WK.
     Route: 042
     Dates: start: 2020
  5. CLARITIN                           /00413701/ [Concomitant]
  6. ANORO ELLIPTA [Concomitant]
     Active Substance: UMECLIDINIUM BROMIDE\VILANTEROL TRIFENATATE
  7. AMOXICILLIN [Concomitant]
     Active Substance: AMOXICILLIN
  8. ZOFRAN                             /00955301/ [Concomitant]
     Indication: Premedication
     Dosage: UNK
     Dates: start: 20200717
  9. TYLENOL                            /00020001/ [Concomitant]
     Indication: Premedication
     Dosage: UNK
     Dates: start: 20200717

REACTIONS (2)
  - Nausea [Recovering/Resolving]
  - Migraine [Not Recovered/Not Resolved]

NARRATIVE: CASE EVENT DATE: 20200701
